FAERS Safety Report 10200202 (Version 2)
Quarter: 2014Q2

REPORT INFORMATION
  Report Type: Spontaneous
  Country: JP (occurrence: JP)
  Receive Date: 20140527
  Receipt Date: 20140527
  Transmission Date: 20141212
  Serious: Yes (Other)
  Sender: FDA-Public Use
  Company Number: JP-B.I. PHARMACEUTICALS,INC./RIDGEFIELD-2014-BI-18494NB

PATIENT
  Age: 70 Year
  Sex: Female

DRUGS (4)
  1. MOBIC [Suspect]
     Indication: PAIN
     Dosage: 10 MG
     Route: 048
     Dates: start: 20140401
  2. TAKEPRON [Suspect]
     Indication: GASTRITIS PROPHYLAXIS
     Dosage: 15 MG
     Route: 048
  3. TSUMURA SHAKUYAKUKANZOTO [Suspect]
     Indication: MYALGIA
     Dosage: 7.5 MG
     Route: 048
  4. SUVENYL [Suspect]
     Indication: ANALGESIC THERAPY
     Route: 042

REACTIONS (3)
  - Hepatic function abnormal [Recovered/Resolved]
  - Aspartate aminotransferase increased [None]
  - Alanine aminotransferase increased [None]
